FAERS Safety Report 6554653-2 (Version None)
Quarter: 2010Q1

REPORT INFORMATION
  Report Type: 
  Country: None (occurrence: None)
  Receive Date: 20100127
  Receipt Date: 20100118
  Transmission Date: 20100710
  Serious: Yes (Disabling)
  Sender: FDA-Public Use
  Company Number: FR-PFIZER INC-2010006342

PATIENT
  Age: 45 Year
  Sex: Male

DRUGS (3)
  1. VFEND [Suspect]
     Indication: BRONCHOPULMONARY ASPERGILLOSIS
     Dosage: UNK
     Route: 048
     Dates: start: 20080601, end: 20091022
  2. KALETRA [Suspect]
     Indication: HIV INFECTION
     Dosage: 2 DF, 2X/DAY
     Dates: start: 20051101
  3. TRUVADA [Suspect]
     Indication: HIV INFECTION
     Dosage: 1 DF, 1X/DAY
     Dates: start: 20051101

REACTIONS (1)
  - NEURITIS [None]
